FAERS Safety Report 12861840 (Version 1)
Quarter: 2016Q4

REPORT INFORMATION
  Report Type: Spontaneous
  Country: US (occurrence: US)
  Receive Date: 20161019
  Receipt Date: 20161019
  Transmission Date: 20170207
  Serious: No
  Sender: FDA-Public Use
  Company Number: PHEH2016US026159

PATIENT
  Sex: Female

DRUGS (1)
  1. COSENTYX [Suspect]
     Active Substance: SECUKINUMAB
     Indication: ANKYLOSING SPONDYLITIS
     Dosage: 2 DF, QMO
     Route: 058

REACTIONS (3)
  - Drug ineffective [Unknown]
  - Pain [Not Recovered/Not Resolved]
  - Prescribed overdose [Unknown]
